FAERS Safety Report 16789171 (Version 6)
Quarter: 2022Q1

REPORT INFORMATION
  Report Type: Other
  Country: CU (occurrence: None)
  Receive Date: 20190910
  Receipt Date: 20220211
  Transmission Date: 20220424
  Serious: No
  Sender: FDA-Public Use
  Company Number: CU-ROCHE-2403497

PATIENT
  Sex: Male
  Weight: 116 kg

DRUGS (12)
  1. EMICIZUMAB [Suspect]
     Active Substance: EMICIZUMAB
     Indication: Prophylaxis
     Route: 058
     Dates: start: 20190724, end: 20190726
  2. EMICIZUMAB [Suspect]
     Active Substance: EMICIZUMAB
     Route: 058
     Dates: start: 20190829, end: 20190831
  3. EMICIZUMAB [Suspect]
     Active Substance: EMICIZUMAB
     Route: 058
     Dates: start: 20191102, end: 20191105
  4. EMICIZUMAB [Suspect]
     Active Substance: EMICIZUMAB
     Indication: Prophylaxis
     Route: 065
  5. CARBAMAZEPINE [Concomitant]
     Active Substance: CARBAMAZEPINE
     Indication: Epilepsy
     Route: 048
     Dates: start: 201811
  6. LEVETIRACETAM [Concomitant]
     Active Substance: LEVETIRACETAM
     Indication: Epilepsy
     Dosage: 2 TABLETS
     Route: 048
     Dates: start: 2016
  7. CLONAZEPAM [Concomitant]
     Active Substance: CLONAZEPAM
     Indication: Epilepsy
     Route: 048
     Dates: start: 2016
  8. ENALAPRIL [Concomitant]
     Active Substance: ENALAPRIL
     Route: 048
     Dates: start: 2016
  9. HYDROCHLOROTHIAZIDE [Concomitant]
     Active Substance: HYDROCHLOROTHIAZIDE
     Indication: Diarrhoea
     Route: 048
     Dates: start: 2017
  10. ATENOLOL [Concomitant]
     Active Substance: ATENOLOL
     Indication: Diarrhoea
     Dosage: 1/4 TABLET
     Route: 048
     Dates: start: 2018
  11. FOLIC ACID [Concomitant]
     Active Substance: FOLIC ACID
     Indication: Anaemia
     Route: 048
     Dates: start: 2010
  12. RISPERIDONE [Concomitant]
     Active Substance: RISPERIDONE
     Route: 048
     Dates: start: 2017

REACTIONS (4)
  - Weight increased [Unknown]
  - Arthralgia [Unknown]
  - Injection site erythema [Unknown]
  - Off label use [Unknown]
